FAERS Safety Report 13528520 (Version 1)
Quarter: 2017Q2

REPORT INFORMATION
  Report Type: Spontaneous
  Country: FR (occurrence: FR)
  Receive Date: 20170509
  Receipt Date: 20170509
  Transmission Date: 20170830
  Serious: Yes (Other)
  Sender: FDA-Public Use
  Company Number: FR-PFIZER INC-2017205344

PATIENT
  Age: 49 Year
  Sex: Female

DRUGS (9)
  1. COSENTYX [Concomitant]
     Active Substance: SECUKINUMAB
     Dosage: 300 MG, CYCLIC
     Route: 030
     Dates: start: 20161221
  2. COSENTYX [Concomitant]
     Active Substance: SECUKINUMAB
     Dosage: 300 MG, CYCLIC
     Route: 030
     Dates: start: 20170116
  3. LEVOTHYROX [Concomitant]
     Active Substance: LEVOTHYROXINE
     Indication: CONGENITAL HYPOTHYROIDISM
     Dosage: 137.5 UG, DAILY
     Route: 048
  4. SPECIAFOLDINE [Concomitant]
     Active Substance: FOLIC ACID
     Indication: VITAMIN SUPPLEMENTATION
     Dosage: 5 MG, WEEKLY
     Route: 048
     Dates: start: 20130831, end: 20161001
  5. COSENTYX [Concomitant]
     Active Substance: SECUKINUMAB
     Dosage: 300 MG, CYCLIC
     Route: 030
     Dates: start: 20161207
  6. IMETH [Suspect]
     Active Substance: METHOTREXATE SODIUM
     Indication: PSORIASIS
     Dosage: 20 MG, WEEKLY
     Route: 048
     Dates: start: 20130831, end: 20161001
  7. COSENTYX [Concomitant]
     Active Substance: SECUKINUMAB
     Dosage: 300 MG, CYCLIC
     Route: 030
     Dates: start: 20161130
  8. COSENTYX [Concomitant]
     Active Substance: SECUKINUMAB
     Dosage: 300 MG, CYCLIC
     Route: 030
     Dates: start: 20161214
  9. COSENTYX [Concomitant]
     Active Substance: SECUKINUMAB
     Indication: PSORIASIS
     Dosage: 300 MG, CYCLIC
     Route: 030
     Dates: start: 20161123

REACTIONS (2)
  - Superficial spreading melanoma stage unspecified [Recovering/Resolving]
  - Treatment failure [Unknown]

NARRATIVE: CASE EVENT DATE: 201702
